FAERS Safety Report 24699486 (Version 1)
Quarter: 2024Q4

REPORT INFORMATION
  Report Type: Spontaneous
  Country: US (occurrence: US)
  Receive Date: 20241205
  Receipt Date: 20241205
  Transmission Date: 20250115
  Serious: Yes (Hospitalization, Other)
  Sender: NOVITIUM PHARMA
  Company Number: US-NOVITIUMPHARMA-2024USNVP02765

PATIENT
  Age: 68 Year
  Sex: Male

DRUGS (3)
  1. PREDNISONE [Suspect]
     Active Substance: PREDNISONE
     Indication: Immunosuppressant drug therapy
  2. MYCOPHENOLATE MOFETIL [Concomitant]
     Active Substance: MYCOPHENOLATE MOFETIL
  3. SIROLIMUS [Concomitant]
     Active Substance: SIROLIMUS

REACTIONS (4)
  - Gastroenteritis Escherichia coli [Unknown]
  - Oesophagitis [Unknown]
  - Histoplasmosis disseminated [Recovered/Resolved]
  - Hypercalcaemia [Recovered/Resolved]
